FAERS Safety Report 23499172 (Version 1)
Quarter: 2024Q1

REPORT INFORMATION
  Report Type: Spontaneous
  Country: US (occurrence: US)
  Receive Date: 20240208
  Receipt Date: 20240208
  Transmission Date: 20240409
  Serious: No
  Sender: FDA-Public Use
  Company Number: US-UNITED THERAPEUTICS-UNT-2023-031133

PATIENT
  Age: 71 Year
  Sex: Male

DRUGS (7)
  1. TYVASO DPI [Suspect]
     Active Substance: TREPROSTINIL
     Indication: Pulmonary arterial hypertension
     Dosage: 64 ?G, QID
     Dates: end: 202310
  2. TYVASO DPI [Suspect]
     Active Substance: TREPROSTINIL
     Dosage: 64 ?G, QID (RESTARTED)
     Dates: start: 202310
  3. TYVASO DPI [Suspect]
     Active Substance: TREPROSTINIL
     Dosage: UNK
     Dates: start: 202212
  4. TYVASO DPI [Suspect]
     Active Substance: TREPROSTINIL
     Indication: Pulmonary arterial hypertension
     Dosage: UNK
  5. OFEV [Concomitant]
     Active Substance: NINTEDANIB
     Indication: Idiopathic pulmonary fibrosis
     Dosage: 150 MG, BID
     Route: 048
     Dates: start: 20210412
  6. OFEV [Concomitant]
     Active Substance: NINTEDANIB
     Indication: Chronic obstructive pulmonary disease
  7. OFEV [Concomitant]
     Active Substance: NINTEDANIB
     Indication: Pulmonary arterial hypertension

REACTIONS (1)
  - COVID-19 [Recovered/Resolved]

NARRATIVE: CASE EVENT DATE: 20231001
